FAERS Safety Report 6313963-4 (Version None)
Quarter: 2009Q3

REPORT INFORMATION
  Report Type: 
  Country: None (occurrence: None)
  Receive Date: 20090818
  Receipt Date: 20090807
  Transmission Date: 20100115
  Serious: Yes (Hospitalization, Other)
  Sender: FDA-Public Use
  Company Number: PHHY2009JP05521

PATIENT
  Age: 70 Year
  Sex: Male

DRUGS (8)
  1. GLEEVEC [Suspect]
     Indication: CHRONIC MYELOID LEUKAEMIA
     Dosage: LESS THAN 200MG DAILY
     Route: 048
     Dates: start: 20010101
  2. GLEEVEC [Suspect]
     Dosage: 400 MG/DAY
     Route: 048
     Dates: start: 20080807, end: 20081025
  3. GLEEVEC [Suspect]
     Dosage: 200 MG DAILY
     Route: 048
     Dates: start: 20081026, end: 20081116
  4. HYDREA [Concomitant]
  5. INTERFERON ALFA [Concomitant]
  6. DAUNOMYCIN [Concomitant]
  7. CYTARABINE [Concomitant]
  8. HYDROXYUREA [Concomitant]

REACTIONS (16)
  - ANAEMIA [None]
  - BLAST CRISIS IN MYELOGENOUS LEUKAEMIA [None]
  - BONE MARROW FAILURE [None]
  - CHRONIC MYELOID LEUKAEMIA [None]
  - DECREASED APPETITE [None]
  - DISSEMINATED INTRAVASCULAR COAGULATION [None]
  - DRUG INEFFECTIVE [None]
  - GENERAL PHYSICAL HEALTH DETERIORATION [None]
  - GENERALISED OEDEMA [None]
  - HEPATOMEGALY [None]
  - LEUKOCYTOSIS [None]
  - MALAISE [None]
  - MALIGNANT NEOPLASM PROGRESSION [None]
  - PLATELET COUNT INCREASED [None]
  - PYREXIA [None]
  - SKIN LESION [None]
